FAERS Safety Report 19398110 (Version 1)
Quarter: 2021Q2

REPORT INFORMATION
  Report Type: Spontaneous
  Country: US (occurrence: US)
  Receive Date: 20210610
  Receipt Date: 20210610
  Transmission Date: 20210717
  Serious: No
  Sender: FDA-Public Use
  Company Number: US-ITALFARMACO SPA-2112554

PATIENT
  Age: 65 Year
  Sex: Female

DRUGS (6)
  1. TIGLUTIK [Suspect]
     Active Substance: RILUZOLE
     Indication: AMYOTROPHIC LATERAL SCLEROSIS
     Dates: start: 20210504, end: 20210526
  2. PEPCID [Concomitant]
     Active Substance: FAMOTIDINE
  3. DEXILANT [Concomitant]
     Active Substance: DEXLANSOPRAZOLE
  4. AMLODIPINE [Concomitant]
     Active Substance: AMLODIPINE BESYLATE
  5. MAXALT?MLT [Concomitant]
     Active Substance: RIZATRIPTAN BENZOATE
  6. SULFAMETHOXAZOLE AND TRIMETHOPRIM [Concomitant]
     Active Substance: SULFAMETHOXAZOLE\TRIMETHOPRIM

REACTIONS (1)
  - Nausea [Recovering/Resolving]

NARRATIVE: CASE EVENT DATE: 20210526
